FAERS Safety Report 4828892-2 (Version None)
Quarter: 2005Q4

REPORT INFORMATION
  Report Type: 
  Country: None (occurrence: None)
  Receive Date: 20051114
  Receipt Date: 20051114
  Transmission Date: 20060501
  Serious: Yes (Death, Hospitalization)
  Sender: FDA-Public Use
  Company Number: None

PATIENT
  Sex: Female
  Weight: 27.8 kg

DRUGS (8)
  1. CYTARABINE [Suspect]
     Indication: ACUTE LYMPHOCYTIC LEUKAEMIA
     Dosage: SEE IMAGE
     Route: 037
     Dates: start: 20040706, end: 20040706
  2. CYTARABINE [Suspect]
     Indication: ACUTE LYMPHOCYTIC LEUKAEMIA
     Dosage: SEE IMAGE
     Route: 037
     Dates: start: 20040707
  3. DAUNORUBICIN [Suspect]
     Dosage: SEE IMAGE
     Route: 042
     Dates: start: 20040707, end: 20040715
  4. DEXAMETHASONE [Suspect]
     Dosage: SEE IMAGE
     Route: 048
     Dates: start: 20040707, end: 20040721
  5. METHOTREXATE [Suspect]
     Dosage: SEE IMAGE
     Route: 037
     Dates: start: 20040715, end: 20040715
  6. METHOTREXATE [Suspect]
     Dosage: SEE IMAGE
     Route: 037
     Dates: start: 20040707
  7. PEG-L-ASPARAGINASE [Suspect]
     Dosage: SEE IMAGE
     Route: 030
     Dates: start: 20040710, end: 20040710
  8. PEG-L-ASPARAGINASE [Suspect]
     Dosage: SEE IMAGE
     Route: 030
     Dates: start: 20040707

REACTIONS (8)
  - AREFLEXIA [None]
  - BRADYCARDIA [None]
  - BRAIN STEM INFARCTION [None]
  - CARDIAC ARREST [None]
  - INFARCTION [None]
  - OEDEMA [None]
  - STAPHYLOCOCCAL SEPSIS [None]
  - THALAMIC INFARCTION [None]
